FAERS Safety Report 25831044 (Version 1)
Quarter: 2025Q3

REPORT INFORMATION
  Report Type: Spontaneous
  Country: GF (occurrence: GF)
  Receive Date: 20250922
  Receipt Date: 20250922
  Transmission Date: 20251020
  Serious: Yes (Other)
  Sender: GILEAD
  Company Number: GF-GILEAD-2025-0727818

PATIENT
  Age: 46 Year
  Sex: Female

DRUGS (1)
  1. BIKTARVY [Suspect]
     Active Substance: BICTEGRAVIR SODIUM\EMTRICITABINE\TENOFOVIR ALAFENAMIDE FUMARATE
     Indication: Product used for unknown indication
     Route: 065

REACTIONS (3)
  - Anal ulcer [Not Recovered/Not Resolved]
  - Anal abscess [Unknown]
  - Viral load abnormal [Not Recovered/Not Resolved]

NARRATIVE: CASE EVENT DATE: 20220909
